FAERS Safety Report 12145757 (Version 1)
Quarter: 2016Q1

REPORT INFORMATION
  Report Type: Report from Study
  Country: US (occurrence: US)
  Receive Date: 20160304
  Receipt Date: 20160304
  Transmission Date: 20160526
  Serious: No
  Sender: FDA-Public Use
  Company Number: US-ABBVIE-16P-163-1561294-00

PATIENT
  Sex: Male

DRUGS (2)
  1. ANDROGEL [Suspect]
     Active Substance: TESTOSTERONE
     Indication: HYPOGONADISM
     Dosage: ONE UNKNOWN STRENGTH PACKET  DAILY
     Route: 061
     Dates: start: 201512, end: 201602
  2. ANDROGEL [Suspect]
     Active Substance: TESTOSTERONE
     Dosage: TWO UNKNOWN STRENGTH PACKETS DAILY
     Route: 061
     Dates: start: 201602

REACTIONS (1)
  - Blood testosterone decreased [Not Recovered/Not Resolved]

NARRATIVE: CASE EVENT DATE: 201602
